FAERS Safety Report 9388064 (Version 1)
Quarter: 2013Q3

REPORT INFORMATION
  Report Type: Spontaneous
  Country: US (occurrence: US)
  Receive Date: 20130708
  Receipt Date: 20130708
  Transmission Date: 20140515
  Serious: Yes (Hospitalization)
  Sender: FDA-Public Use
  Company Number: US-TARO PHARMACEUTICALS U.S.A., INC-2013SUN00960

PATIENT
  Age: 57 Year
  Sex: 0

DRUGS (2)
  1. WARFARIN [Suspect]
     Indication: ATRIAL FIBRILLATION
  2. PROTHROMBIN [Suspect]
     Indication: COAGULOPATHY

REACTIONS (2)
  - Pulmonary embolism [Unknown]
  - Cerebral haemorrhage [Unknown]
